FAERS Safety Report 4544443-4 (Version None)
Quarter: 2004Q4

REPORT INFORMATION
  Report Type: 
  Country: None (occurrence: None)
  Receive Date: 20041230
  Receipt Date: 20041218
  Transmission Date: 20050328
  Serious: Yes (Other)
  Sender: FDA-Public Use
  Company Number: GB-JNJFOC-20041205453

PATIENT
  Age: 31 Year
  Sex: Female

DRUGS (3)
  1. MEBENDAZOLE [Suspect]
     Indication: ENTEROBIASIS
     Dosage: 100 MG, IN 1 DAY, ORAL
     Route: 048
     Dates: start: 20041206, end: 20041206
  2. BUDESONIDE (BUDESONIDE) [Concomitant]
  3. SALBUTAMOL (SALBUTAMOL) [Concomitant]

REACTIONS (1)
  - ATRIAL FLUTTER [None]
